FAERS Safety Report 6597096-8 (Version None)
Quarter: 2010Q1

REPORT INFORMATION
  Report Type: 
  Country: None (occurrence: None)
  Receive Date: 20100212
  Receipt Date: 20100202
  Transmission Date: 20100710
  Serious: Yes (Hospitalization, Other)
  Sender: FDA-Public Use
  Company Number: 2010000659

PATIENT
  Age: 71 Year
  Sex: Male
  Weight: 75.7507 kg

DRUGS (3)
  1. TREANDA [Suspect]
     Indication: CHRONIC LYMPHOCYTIC LEUKAEMIA
     Dosage: INTRAVENOUS
     Route: 042
     Dates: start: 20091101
  2. ALLOPURINOL [Concomitant]
  3. NEURONTIN [Concomitant]

REACTIONS (8)
  - APHTHOUS STOMATITIS [None]
  - BLOOD POTASSIUM INCREASED [None]
  - BONE MARROW FAILURE [None]
  - CHEST PAIN [None]
  - FUNGAL OESOPHAGITIS [None]
  - H1N1 INFLUENZA [None]
  - LYMPHADENOPATHY [None]
  - OEDEMA PERIPHERAL [None]
